FAERS Safety Report 4327139-3 (Version None)
Quarter: 2004Q1

REPORT INFORMATION
  Report Type: 
  Country: None (occurrence: None)
  Receive Date: 20040330
  Receipt Date: 20040316
  Transmission Date: 20041129
  Serious: Yes (Other)
  Sender: FDA-Public Use
  Company Number: US-GLAXOSMITHKLINE-A0504670A

PATIENT
  Age: 18 Year
  Sex: Female

DRUGS (3)
  1. LAMICTAL [Suspect]
     Indication: DRUG USE FOR UNKNOWN INDICATION
     Route: 048
  2. PRENATAL VITAMINS [Concomitant]
  3. PHENERGAN [Concomitant]

REACTIONS (2)
  - ABORTION SPONTANEOUS [None]
  - PREMATURE SEPARATION OF PLACENTA [None]
